FAERS Safety Report 4726215-0 (Version None)
Quarter: 2005Q3

REPORT INFORMATION
  Report Type: 
  Country: None (occurrence: None)
  Receive Date: 20050725
  Receipt Date: 20050711
  Transmission Date: 20060218
  Serious: Yes (Hospitalization)
  Sender: FDA-Public Use
  Company Number: 215986

PATIENT
  Age: 84 Year
  Sex: Female

DRUGS (1)
  1. RITUXAN [Suspect]
     Indication: NON-HODGKIN'S LYMPHOMA
     Dosage: 373 MG/M2, INTRAVENOUS
     Route: 042
     Dates: start: 20040423, end: 20050430

REACTIONS (2)
  - LUNG DISORDER [None]
  - NEOPLASM [None]
